FAERS Safety Report 20612271 (Version 1)
Quarter: 2022Q1

REPORT INFORMATION
  Report Type: Spontaneous
  Country: US (occurrence: None)
  Receive Date: 20220318
  Receipt Date: 20220318
  Transmission Date: 20220423
  Serious: Yes (Death)
  Sender: FDA-Public Use
  Company Number: None

PATIENT
  Age: 86 Year
  Sex: Male
  Weight: 64.35 kg

DRUGS (3)
  1. RECLAST [Suspect]
     Active Substance: ZOLEDRONIC ACID
     Indication: Osteoporosis
     Dosage: OTHER FREQUENCY : ANNUAL;?
     Route: 042
  2. ELIQUIS [Concomitant]
     Active Substance: APIXABAN
  3. CALCIUM AND VIT D3 [Concomitant]

REACTIONS (9)
  - Haemoperitoneum [None]
  - Oesophageal rupture [None]
  - Hiatus hernia [None]
  - Aspiration [None]
  - Acute respiratory failure [None]
  - Oesophageal spasm [None]
  - Hiccups [None]
  - Diffuse alveolar damage [None]
  - Pneumothorax [None]

NARRATIVE: CASE EVENT DATE: 20220101
